FAERS Safety Report 9314986 (Version 1)
Quarter: 2013Q2

REPORT INFORMATION
  Report Type: Spontaneous
  Country: BR (occurrence: BR)
  Receive Date: 20130529
  Receipt Date: 20130529
  Transmission Date: 20140414
  Serious: Yes (Other)
  Sender: FDA-Public Use
  Company Number: BR-GLAXOSMITHKLINE-A1024926A

PATIENT
  Age: 2 Year
  Sex: Male

DRUGS (4)
  1. SERETIDE [Suspect]
     Indication: BRONCHITIS
     Route: 065
     Dates: start: 201204, end: 201210
  2. SINGULAIR [Suspect]
     Indication: BRONCHITIS
     Route: 065
     Dates: start: 201204, end: 201210
  3. BEROTEC [Concomitant]
     Dates: start: 201107
  4. ATROVENT [Concomitant]
     Dates: start: 201107

REACTIONS (2)
  - Pneumonia [Unknown]
  - Ear infection [Unknown]
